FAERS Safety Report 8273022-0 (Version None)
Quarter: 2012Q2

REPORT INFORMATION
  Report Type: 
  Country: None (occurrence: None)
  Receive Date: 20120411
  Receipt Date: 20120406
  Transmission Date: 20120825
  Serious: No
  Sender: FDA-Public Use
  Company Number: US-PFIZER INC-2012087556

PATIENT
  Sex: Male
  Weight: 79.365 kg

DRUGS (6)
  1. SUTENT [Suspect]
     Indication: LUNG NEOPLASM MALIGNANT
     Dosage: 50 MG, 1X/DAY
     Route: 048
     Dates: start: 20120101
  2. SUTENT [Suspect]
     Indication: THYROID CANCER
     Dosage: 50 MG, 1X/DAY
     Route: 048
     Dates: start: 20111101, end: 20111201
  3. SUTENT [Suspect]
     Indication: HEPATIC NEOPLASM MALIGNANT
  4. JANUVIA [Concomitant]
     Indication: DIABETES MELLITUS
     Dosage: 100 MG, (FREQUENCY UNKNOWN)
  5. MESTINON [Concomitant]
     Indication: NEUROPATHY PERIPHERAL
     Dosage: UNK
  6. NORVASC [Concomitant]
     Indication: HYPERTENSION
     Dosage: UNK

REACTIONS (1)
  - PRURITUS [None]
